FAERS Safety Report 12383177 (Version 1)
Quarter: 2016Q2

REPORT INFORMATION
  Report Type: Spontaneous
  Country: US (occurrence: US)
  Receive Date: 20160518
  Receipt Date: 20160518
  Transmission Date: 20160815
  Serious: No
  Sender: FDA-Public Use
  Company Number: US-PFIZER INC-2016233864

PATIENT
  Age: 58 Year
  Sex: Female
  Weight: 61 kg

DRUGS (1)
  1. DUAVEE [Suspect]
     Active Substance: BAZEDOXIFENE ACETATE\ESTROGENS, CONJUGATED
     Indication: HOT FLUSH
     Dosage: 20 MG, DAILY
     Route: 048
     Dates: start: 20160419

REACTIONS (1)
  - Drug ineffective [Unknown]

NARRATIVE: CASE EVENT DATE: 20160425
